FAERS Safety Report 21170781 (Version 2)
Quarter: 2022Q3

REPORT INFORMATION
  Report Type: Spontaneous
  Country: US (occurrence: US)
  Receive Date: 20220804
  Receipt Date: 20220914
  Transmission Date: 20221027
  Serious: Yes (Other)
  Sender: FDA-Public Use
  Company Number: US-JNJFOC-20220753844

PATIENT
  Age: 63 Year
  Sex: Male

DRUGS (1)
  1. TYLENOL [Suspect]
     Active Substance: ACETAMINOPHEN
     Indication: Pain
     Dosage: HAS BEEN TAKING FOREVER 2 GELCAPS EVERY 8 TO 10 HOURS
     Route: 048
     Dates: start: 20220725

REACTIONS (9)
  - Foreign body in throat [Recovered/Resolved]
  - Poor quality product administered [Recovered/Resolved]
  - Product quality issue [Unknown]
  - Product contamination physical [Unknown]
  - Suffocation feeling [Recovered/Resolved]
  - Retching [Not Recovered/Not Resolved]
  - Vomiting [Recovered/Resolved]
  - Oropharyngeal pain [Not Recovered/Not Resolved]
  - Illness [Recovered/Resolved]

NARRATIVE: CASE EVENT DATE: 20220725
